FAERS Safety Report 8378657-2 (Version None)
Quarter: 2012Q2

REPORT INFORMATION
  Report Type: 
  Country: None (occurrence: None)
  Receive Date: 20120522
  Receipt Date: 20110713
  Transmission Date: 20120825
  Serious: No
  Sender: FDA-Public Use
  Company Number: US-ASTRAZENECA-2011SE42463

PATIENT
  Age: 30 Year
  Sex: Female

DRUGS (2)
  1. PRILOSEC [Suspect]
     Route: 048
  2. PRILOSEC OTC [Suspect]
     Route: 048

REACTIONS (4)
  - MATERNAL EXPOSURE DURING PREGNANCY [None]
  - DRUG EFFECT DECREASED [None]
  - BARRETT'S OESOPHAGUS [None]
  - ARTHRALGIA [None]
